FAERS Safety Report 11236453 (Version 4)
Quarter: 2015Q3

REPORT INFORMATION
  Report Type: Spontaneous
  Country: JP (occurrence: JP)
  Receive Date: 20150702
  Receipt Date: 20150911
  Transmission Date: 20151125
  Serious: Yes (Hospitalization, Other)
  Sender: FDA-Public Use
  Company Number: JP-GILEAD-2015-0161101

PATIENT
  Age: 50 Year
  Sex: Male
  Weight: 70.9 kg

DRUGS (26)
  1. AMANTADINE HYDROCHLORIDE. [Concomitant]
     Active Substance: AMANTADINE HYDROCHLORIDE
     Dosage: 2 DF, BID, AFTER BREAKFAST AND DINNER
     Route: 048
  2. REBAMIPIDE [Concomitant]
     Active Substance: REBAMIPIDE
     Dosage: 3 DF, TID, AFTER EACH MEAL
  3. PRANLUKAST [Concomitant]
     Active Substance: PRANLUKAST
     Dosage: 4 DF, BID, AFTER BREAKFAST AND DINNER
     Route: 048
  4. AKIRIDEN [Concomitant]
     Active Substance: BIPERIDEN
     Indication: HALLUCINATION, AUDITORY
     Dosage: 1 DF, PRN
     Route: 048
  5. MAGNESIUM OXIDE. [Concomitant]
     Active Substance: MAGNESIUM OXIDE
     Dosage: 6 DF, TID, AFTER EACH MEAL
     Route: 048
  6. QUETIAPINE FUMARATE. [Concomitant]
     Active Substance: QUETIAPINE FUMARATE
     Dosage: 3 DF, TID, AFTER EACH MEAL
     Route: 048
  7. ABILIFY [Concomitant]
     Active Substance: ARIPIPRAZOLE
     Dosage: 1 DF, QD, AFTER BREAKFAST
     Route: 048
  8. QUAZEPAM. [Concomitant]
     Active Substance: QUAZEPAM
     Dosage: 1 DF, QHS
     Route: 048
  9. REFLEX                             /00021218/ [Concomitant]
     Dosage: 3 DF, QHS
     Route: 048
  10. BROTIZOLAM [Concomitant]
     Active Substance: BROTIZOLAM
     Dosage: 1 DF, QHS
     Route: 048
  11. QUETIAPINE FUMARATE. [Concomitant]
     Active Substance: QUETIAPINE FUMARATE
     Dosage: 1 DF, QD, AFTER LUNCH
     Route: 048
  12. PURSENNID                          /00142207/ [Concomitant]
     Active Substance: SENNOSIDES A AND B
     Dosage: 2 DF, QHS
     Route: 048
  13. CETIRIZINE HYDROCHLORIDE. [Concomitant]
     Active Substance: CETIRIZINE HYDROCHLORIDE
     Dosage: 2 DF, QHS
     Route: 048
  14. QUETIAPINE [Concomitant]
     Active Substance: QUETIAPINE
     Dosage: 100 MG, QHS
     Route: 048
  15. MELOXICAM. [Concomitant]
     Active Substance: MELOXICAM
     Dosage: 1.5 DF, QHS
     Route: 048
  16. CANDESARTAN [Concomitant]
     Active Substance: CANDESARTAN
     Dosage: 1 DF, QD, AFTER BREAKFAST
     Route: 048
  17. SOVALDI [Suspect]
     Active Substance: SOFOSBUVIR
     Indication: CHRONIC HEPATITIS C
     Dosage: 400 MG, QD
     Route: 048
     Dates: start: 20150613
  18. COPEGUS [Concomitant]
     Active Substance: RIBAVIRIN
     Indication: CHRONIC HEPATITIS C
     Dosage: 800 MG, QD
     Route: 048
     Dates: start: 20150613
  19. ALPRAZOLAM. [Concomitant]
     Active Substance: ALPRAZOLAM
     Dosage: 3 DF, TID, AFTER EACH MEAL
     Route: 048
  20. AKIRIDEN [Concomitant]
     Active Substance: BIPERIDEN
     Dosage: 6 DF, TID, AFTER EACH MEAL
  21. TRIHEXIN                           /00002602/ [Concomitant]
     Dosage: 3 DF, TID, AFTER EACH MEAL
     Route: 048
  22. SENNA [Concomitant]
     Active Substance: SENNA LEAF\SENNOSIDES\SENNOSIDES A AND B
     Dosage: 0.5 G, QHS
     Route: 048
  23. SODIUM RABEPRAZOLE [Concomitant]
     Active Substance: RABEPRAZOLE SODIUM
     Dosage: 1 DF, QD, AFTER DINNER
     Route: 048
  24. RISPERIDONE. [Concomitant]
     Active Substance: RISPERIDONE
     Indication: HALLUCINATION, AUDITORY
     Dosage: UNK, PRN
     Route: 048
  25. SOLOMUCO [Concomitant]
     Dosage: 3 DF, TID, AFTER EACH MEAL
     Route: 048
  26. SENNARIDE [Concomitant]
     Active Substance: SENNOSIDES A AND B
     Dosage: 4 DF, QHS
     Route: 048

REACTIONS (2)
  - Intestinal obstruction [Recovering/Resolving]
  - Colitis [Recovered/Resolved]

NARRATIVE: CASE EVENT DATE: 20150625
